FAERS Safety Report 4907941-7 (Version None)
Quarter: 2006Q1

REPORT INFORMATION
  Report Type: 
  Country: None (occurrence: None)
  Receive Date: 20060207
  Receipt Date: 20060124
  Transmission Date: 20060701
  Serious: Yes (Hospitalization, Other)
  Sender: FDA-Public Use
  Company Number: 2006BI000261

PATIENT
  Sex: Female

DRUGS (5)
  1. AVONEX LYOPHILIZED [Suspect]
     Indication: MULTIPLE SCLEROSIS
     Dosage: 30 UG; QW; IM
     Route: 030
     Dates: start: 19970301
  2. ASPIRIN [Concomitant]
  3. ALLEGRA [Concomitant]
  4. TRICOR [Concomitant]
  5. LEXAPRO [Concomitant]

REACTIONS (12)
  - ARTERIOVENOUS MALFORMATION [None]
  - CENTRAL NERVOUS SYSTEM INFECTION [None]
  - CEREBRAL ARTERY EMBOLISM [None]
  - CEREBROVASCULAR ACCIDENT [None]
  - COAGULATION FACTOR V LEVEL ABNORMAL [None]
  - COAGULOPATHY [None]
  - EMBOLISM [None]
  - POSTOPERATIVE INFECTION [None]
  - RIB FRACTURE [None]
  - ROAD TRAFFIC ACCIDENT [None]
  - SPLENIC RUPTURE [None]
  - THERAPY NON-RESPONDER [None]
